FAERS Safety Report 6124629-8 (Version None)
Quarter: 2009Q1

REPORT INFORMATION
  Report Type: 
  Country: None (occurrence: None)
  Receive Date: 20090319
  Receipt Date: 20090317
  Transmission Date: 20090719
  Serious: Yes (Other)
  Sender: FDA-Public Use
  Company Number: B0560222A

PATIENT
  Age: 52 Year
  Sex: Female

DRUGS (6)
  1. HEPSERA [Suspect]
     Indication: HEPATITIS B
     Route: 065
     Dates: start: 20030401, end: 20050101
  2. LAMIVUDINE [Suspect]
     Indication: DRUG USE FOR UNKNOWN INDICATION
     Route: 065
  3. UNKNOWN DRUG [Concomitant]
  4. INTERFERON [Concomitant]
  5. ETRAVIRINE [Concomitant]
  6. ENTECAVIR [Concomitant]
     Route: 065

REACTIONS (8)
  - DIABETES MELLITUS [None]
  - DRUG INEFFECTIVE [None]
  - HYPOPHOSPHATAEMIA [None]
  - HYPOURICAEMIA [None]
  - NEPHROPATHY TOXIC [None]
  - POLLAKIURIA [None]
  - RENAL FAILURE [None]
  - RENAL TUBULAR DISORDER [None]
